FAERS Safety Report 16564366 (Version 1)
Quarter: 2019Q3

REPORT INFORMATION
  Report Type: Spontaneous
  Country: DE (occurrence: DE)
  Receive Date: 20190712
  Receipt Date: 20190712
  Transmission Date: 20191004
  Serious: Yes (Hospitalization)
  Sender: FDA-Public Use
  Company Number: DE-ACCORD-137989

PATIENT
  Age: 58 Year
  Sex: Male
  Weight: 70 kg

DRUGS (11)
  1. PREDNISOLONE. [Suspect]
     Active Substance: PREDNISOLONE
     Indication: PRODUCT USED FOR UNKNOWN INDICATION
     Dosage: 15 MG, 1-0-0-0
     Route: 048
  2. SPIRONOLACTONE. [Concomitant]
     Active Substance: SPIRONOLACTONE
     Dosage: 100 MG, IF REQUIRED 1-0-0-0
     Route: 048
  3. CALCIUM CARBONATE/COLECALCIFEROL [Concomitant]
     Dosage: 1000/800 MG/IU, 0-1-0-0, EFFERVESCENT TABLETS
     Route: 048
  4. PRADAXA [Concomitant]
     Active Substance: DABIGATRAN ETEXILATE MESYLATE
     Dosage: 110 MG, 1-0-1-0, STRENGTH: 110 MG
     Route: 048
  5. NALOXONE HYDROCHLORIDE/TILIDINE HYDROCHLORIDE [Concomitant]
     Dosage: 50/4 MG, IF REQUIRED
     Route: 048
  6. PANTOPRAZOLE [Concomitant]
     Active Substance: PANTOPRAZOLE
     Dosage: 40 MG, 1-0-0-0
     Route: 048
  7. URSOFALK [Concomitant]
     Active Substance: URSODIOL
     Dosage: 500 MG, 1-0-1-0, STRENGTH: 500 MG
     Route: 048
  8. CARVEDILOL/CARVEDILOL HYDROCHLODRIDE [Concomitant]
     Dosage: 6.25 MG, 1-0-1-0
     Route: 048
  9. FUROSEMIDE. [Concomitant]
     Active Substance: FUROSEMIDE
     Dosage: 40 MG, IF REQUIRED 1-0-0-0
     Route: 048
  10. MYCOPHENOLATE MOFETIL/MYCOPHENOLATE SODIUM/MYCOPHENOLIC ACID [Suspect]
     Active Substance: MYCOPHENOLIC ACID
     Indication: PRODUCT USED FOR UNKNOWN INDICATION
     Dosage: 500 MG, 2-0-2-0
     Route: 048
  11. NYSTADERM MUNDGEL [Concomitant]
     Dosage: 50 G, EVERY 2-3 H, MOUTH GEL
     Route: 048

REACTIONS (4)
  - Dysphagia [Unknown]
  - Oesophageal candidiasis [Unknown]
  - General physical health deterioration [Unknown]
  - Hypophagia [Unknown]
